FAERS Safety Report 7582671-4 (Version None)
Quarter: 2011Q2

REPORT INFORMATION
  Report Type: 
  Country: None (occurrence: None)
  Receive Date: 20110623
  Receipt Date: 20110225
  Transmission Date: 20111010
  Serious: Yes (Hospitalization)
  Sender: FDA-Public Use
  Company Number: ADR-2011UNK010

PATIENT
  Age: 17 Year
  Sex: Male

DRUGS (6)
  1. CEFDITOREN PIVOXIL [Concomitant]
  2. CARBOCISTEIN [Concomitant]
  3. BEPOTASTINE BESTILATE [Concomitant]
  4. AMOXICILLIN [Concomitant]
  5. ZONISAMIDE [Suspect]
     Indication: PRODUCT USED FOR UNKNOWN INDICATION
     Dosage: ORAL
     Route: 048
     Dates: start: 20070501
  6. CARBAMAZEPINE [Concomitant]

REACTIONS (2)
  - DRUG RASH WITH EOSINOPHILIA AND SYSTEMIC SYMPTOMS [None]
  - TOXIC EPIDERMAL NECROLYSIS [None]
